FAERS Safety Report 5949881-0 (Version None)
Quarter: 2008Q4

REPORT INFORMATION
  Report Type: 
  Country: None (occurrence: None)
  Receive Date: 20081112
  Receipt Date: 20081110
  Transmission Date: 20090506
  Serious: Yes (Other)
  Sender: FDA-Public Use
  Company Number: GB-BRISTOL-MYERS SQUIBB COMPANY-14395891

PATIENT
  Age: 53 Year
  Sex: Female

DRUGS (5)
  1. ORENCIA [Suspect]
     Indication: RHEUMATOID ARTHRITIS
     Dosage: TOTAL NUMBER OF INFUSIONS-3
     Dates: start: 20080601
  2. PREDNISOLONE [Concomitant]
  3. ACETYLSALICYLIC ACID SRT [Concomitant]
  4. ACTONEL [Concomitant]
  5. SERETIDE [Concomitant]
     Route: 055

REACTIONS (1)
  - CONVULSION [None]
